FAERS Safety Report 12683736 (Version 1)
Quarter: 2016Q3

REPORT INFORMATION
  Report Type: Spontaneous
  Country: US (occurrence: None)
  Receive Date: 20160824
  Receipt Date: 20160824
  Transmission Date: 20161109
  Serious: Yes (Hospitalization)
  Sender: FDA-Public Use
  Company Number: None

PATIENT
  Age: 59 Year
  Sex: Female
  Weight: 112.6 kg

DRUGS (29)
  1. DULOXETINE. [Concomitant]
     Active Substance: DULOXETINE
  2. ACYCLOVIR. [Concomitant]
     Active Substance: ACYCLOVIR
  3. BECLOMETHASONE [Concomitant]
     Active Substance: BECLOMETHASONE
  4. VITAMIN E [Concomitant]
     Active Substance: .ALPHA.-TOCOPHEROL
  5. HYDROCODONE-ACETAMINOPHEN [Concomitant]
     Active Substance: ACETAMINOPHEN\HYDROCODONE
  6. SENNA-DOCUSATE [Concomitant]
  7. TRIMETHOPRIM-SULFAMETHOXAZOLE [Concomitant]
     Active Substance: SULFAMETHOXAZOLE\TRIMETHOPRIM
  8. VITAMIN B COMPLEX [Concomitant]
     Active Substance: CYANOCOBALAMIN\DEXPANTHENOL\NIACINAMIDE\PYRIDOXINE HYDROCHLORIDE\RIBOFLAVIN 5^-PHOSPHATE SODIUM\THIAMINE HYDROCHLORIDE\VITAMIN B COMPLEX
  9. LATANOPROST. [Concomitant]
     Active Substance: LATANOPROST
  10. SIMVASTATIN. [Concomitant]
     Active Substance: SIMVASTATIN
  11. DEXAMETHASONE. [Concomitant]
     Active Substance: DEXAMETHASONE
  12. COCOA BUTTER TOPICAL LOTION [Concomitant]
  13. METOPROLOL SUCCINATE. [Concomitant]
     Active Substance: METOPROLOL SUCCINATE
  14. HEPARIN [Concomitant]
     Active Substance: HEPARIN SODIUM
  15. FOLIC ACID. [Concomitant]
     Active Substance: FOLIC ACID
  16. REVLIMID [Suspect]
     Active Substance: LENALIDOMIDE
     Indication: PLASMA CELL MYELOMA
     Route: 048
     Dates: start: 20160713, end: 20160814
  17. METFORMIN [Concomitant]
     Active Substance: METFORMIN HYDROCHLORIDE
  18. VILAZODONE [Concomitant]
     Active Substance: VILAZODONE
  19. LORAZEPAM. [Concomitant]
     Active Substance: LORAZEPAM
  20. ENOXAPARIN [Concomitant]
     Active Substance: ENOXAPARIN
  21. INSULIN LISPRO [Concomitant]
     Active Substance: INSULIN LISPRO
  22. INSULIN [Concomitant]
     Active Substance: INSULIN NOS
  23. PROCHLORPERAZINE. [Concomitant]
     Active Substance: PROCHLORPERAZINE
  24. LEVOTHYROXINE. [Concomitant]
     Active Substance: LEVOTHYROXINE
  25. VELCADE [Suspect]
     Active Substance: BORTEZOMIB
     Indication: PLASMA CELL MYELOMA
     Route: 042
     Dates: start: 20160713, end: 20160811
  26. ACETAMINOPHEN. [Concomitant]
     Active Substance: ACETAMINOPHEN
  27. LISINOPRIL. [Concomitant]
     Active Substance: LISINOPRIL
  28. FUROSEMIDE. [Concomitant]
     Active Substance: FUROSEMIDE
  29. OMEPRAZOLE. [Concomitant]
     Active Substance: OMEPRAZOLE

REACTIONS (2)
  - Diarrhoea [None]
  - Cardiac failure congestive [None]

NARRATIVE: CASE EVENT DATE: 20160818
